FAERS Safety Report 16985001 (Version 2)
Quarter: 2019Q4

REPORT INFORMATION
  Report Type: Spontaneous
  Country: GB (occurrence: FR)
  Receive Date: 20191101
  Receipt Date: 20191114
  Transmission Date: 20200122
  Serious: Yes (Life-Threatening, Hospitalization)
  Sender: FDA-Public Use
  Company Number: FR-BAYER-2019-192440

PATIENT
  Age: 15 Year
  Sex: Female
  Weight: 65.1 kg

DRUGS (7)
  1. VOLTARENE (DICLOFENAC SODIUM) [Suspect]
     Active Substance: DICLOFENAC SODIUM
     Indication: POISONING DELIBERATE
     Dosage: UNK
     Route: 048
  2. LUMIRELAX [METHOCARBAMOL] [Suspect]
     Active Substance: METHOCARBAMOL
     Indication: POISONING DELIBERATE
     Dosage: UNK
     Route: 048
  3. TAREG [Suspect]
     Active Substance: VALSARTAN
     Indication: POISONING DELIBERATE
     Dosage: UNK
     Route: 048
  4. PARACETAMOL [Suspect]
     Active Substance: ACETAMINOPHEN
     Indication: POISONING DELIBERATE
     Dosage: UNK
     Route: 048
  5. LOXEN [LOXOPROFEN SODIUM] [Suspect]
     Active Substance: LOXOPROFEN SODIUM
     Indication: POISONING DELIBERATE
     Dosage: UNK
     Route: 048
  6. TRAMADOL [TRAMADOL HYDROCHLORIDE] [Suspect]
     Active Substance: TRAMADOL HYDROCHLORIDE
     Indication: POISONING DELIBERATE
     Dosage: UNK
     Route: 048
  7. NAPROXENE BAYER 220 MG [Suspect]
     Active Substance: NAPROXEN
     Indication: POISONING DELIBERATE
     Dosage: UNK
     Route: 048

REACTIONS (6)
  - Altered state of consciousness [Recovered/Resolved]
  - Generalised tonic-clonic seizure [Recovered/Resolved]
  - Hypoventilation [Recovered/Resolved]
  - Haemodynamic instability [Recovered/Resolved]
  - Acute kidney injury [Recovered/Resolved]
  - Acidosis [Recovered/Resolved]

NARRATIVE: CASE EVENT DATE: 20190913
